FAERS Safety Report 6727572-6 (Version None)
Quarter: 2010Q2

REPORT INFORMATION
  Report Type: 
  Country: None (occurrence: None)
  Receive Date: 20100517
  Receipt Date: 20100514
  Transmission Date: 20101027
  Serious: Yes (Life-Threatening, Hospitalization)
  Sender: FDA-Public Use
  Company Number: PHHO2010IT06990

PATIENT
  Sex: Male
  Weight: 90 kg

DRUGS (3)
  1. AFINITOR [Suspect]
     Indication: MYELOFIBROSIS
     Dosage: 10 MG
     Route: 048
     Dates: start: 20100413, end: 20100503
  2. OLMESARTAN MEDOXOMIL [Concomitant]
     Indication: HYPERTENSION
  3. ALLOPURINOL [Concomitant]
     Indication: HYPERURICAEMIA

REACTIONS (3)
  - BRONCHOPNEUMONIA [None]
  - MULTI-ORGAN FAILURE [None]
  - RENAL FAILURE ACUTE [None]
